FAERS Safety Report 24990771 (Version 1)
Quarter: 2025Q1

REPORT INFORMATION
  Report Type: Spontaneous
  Country: PT (occurrence: PT)
  Receive Date: 20250220
  Receipt Date: 20250220
  Transmission Date: 20250408
  Serious: Yes (Other)
  Sender: FRESENIUS KABI
  Company Number: None

PATIENT
  Age: 71 Year
  Sex: Female
  Weight: 52 kg

DRUGS (2)
  1. KETOROLAC [Suspect]
     Active Substance: KETOROLAC TROMETHAMINE
     Indication: Postoperative care
     Dosage: KETOROLAC 30MG 8H/8H?FOA: SOLUTION FOR INJECTION
     Route: 042
     Dates: start: 20250130, end: 20250131
  2. ACETAMINOPHEN [Suspect]
     Active Substance: ACETAMINOPHEN
     Indication: Postoperative care
     Dosage: PARACETAMOL 1000MG 8H/8H?FOA: SOLUTION FOR INJECTION
     Route: 042
     Dates: start: 20250130, end: 20250131

REACTIONS (2)
  - Erythema [Recovering/Resolving]
  - Feeling hot [Recovering/Resolving]

NARRATIVE: CASE EVENT DATE: 20250131
